FAERS Safety Report 9070405 (Version 1)
Quarter: 2013Q1

REPORT INFORMATION
  Report Type: Spontaneous
  Country: DE (occurrence: DE)
  Receive Date: 20130215
  Receipt Date: 20130215
  Transmission Date: 20140127
  Serious: Yes (Hospitalization)
  Sender: FDA-Public Use
  Company Number: CHPA2013DE003088

PATIENT
  Sex: 0

DRUGS (1)
  1. OTRIVEN [Suspect]
     Dosage: 0.3 MG, ONCE/SINGLE
     Route: 045
     Dates: start: 20130211, end: 20130211

REACTIONS (2)
  - Wrong drug administered [Unknown]
  - No adverse event [Unknown]
